FAERS Safety Report 9136835 (Version 1)
Quarter: 2013Q1

REPORT INFORMATION
  Report Type: Spontaneous
  Country: US (occurrence: US)
  Receive Date: 20130304
  Receipt Date: 20130304
  Transmission Date: 20140127
  Serious: Yes (Other)
  Sender: FDA-Public Use
  Company Number: US-PURDUE-USA-2013-0099386

PATIENT
  Sex: Male

DRUGS (5)
  1. OXYCONTIN (NDA 22-272) [Suspect]
     Indication: PAIN
     Dosage: 80 MG, Q12H
     Route: 048
  2. PERCOCET                           /00867901/ [Suspect]
     Indication: PAIN
     Dosage: 10/325 MG , EVERY 4 HOURS
     Route: 048
  3. ENABLEX [Suspect]
     Indication: BLADDER DISORDER
     Dosage: 7.5 MG, DAILY
     Route: 048
  4. PANTOPRAZOLE [Suspect]
     Indication: GASTROOESOPHAGEAL REFLUX DISEASE
     Dosage: 40 MG, DAILY
     Route: 048
  5. EQUATE STOOL SOFTENER [Suspect]
     Indication: DIARRHOEA
     Dosage: 1-2 TABLETS, 50/8.6 MG , DAILY
     Route: 048

REACTIONS (7)
  - Surgery [Unknown]
  - Gastrooesophageal reflux disease [Not Recovered/Not Resolved]
  - Medication residue present [Not Recovered/Not Resolved]
  - Vomiting [Not Recovered/Not Resolved]
  - Constipation [Not Recovered/Not Resolved]
  - Arthritis [Not Recovered/Not Resolved]
  - Drug effect decreased [Unknown]
